FAERS Safety Report 25491799 (Version 1)
Quarter: 2025Q2

REPORT INFORMATION
  Report Type: Spontaneous
  Country: GB (occurrence: GB)
  Receive Date: 20250630
  Receipt Date: 20250630
  Transmission Date: 20250717
  Serious: Yes (Other)
  Sender: Unknown Manufacturer
  Company Number: None

PATIENT
  Sex: Male
  Weight: 60 kg

DRUGS (3)
  1. ATORVASTATIN [Suspect]
     Active Substance: ATORVASTATIN
     Indication: Blood cholesterol increased
  2. Vitamin B 12 (over the counter supplement) [Concomitant]
     Indication: Product used for unknown indication
  3. Vitamin D (over the counter supplement) [Concomitant]
     Indication: Product used for unknown indication

REACTIONS (3)
  - Lichen sclerosus [Recovering/Resolving]
  - Dysuria [Unknown]
  - Rash [Unknown]

NARRATIVE: CASE EVENT DATE: 20250123
